FAERS Safety Report 6487320-4 (Version None)
Quarter: 2009Q4

REPORT INFORMATION
  Report Type: 
  Country: None (occurrence: None)
  Receive Date: 20091210
  Receipt Date: 20091201
  Transmission Date: 20100525
  Serious: Yes (Hospitalization)
  Sender: FDA-Public Use
  Company Number: AT-JNJFOC-20091200789

PATIENT
  Age: 46 Year
  Sex: Male
  Weight: 73 kg

DRUGS (3)
  1. REMICADE [Suspect]
     Route: 042
     Dates: start: 20071126, end: 20091001
  2. REMICADE [Suspect]
     Route: 042
     Dates: start: 20071126, end: 20091001
  3. REMICADE [Suspect]
     Indication: CROHN'S DISEASE
     Route: 042
     Dates: start: 20071126, end: 20091001

REACTIONS (2)
  - HERPES ZOSTER [None]
  - KERATITIS HERPETIC [None]
